FAERS Safety Report 22213597 (Version 1)
Quarter: 2023Q2

REPORT INFORMATION
  Report Type: Spontaneous
  Country: FR (occurrence: FR)
  Receive Date: 20230414
  Receipt Date: 20230414
  Transmission Date: 20230722
  Serious: Yes (Other)
  Sender: FDA-Public Use
  Company Number: FR-ELI_LILLY_AND_COMPANY-FR202304003614

PATIENT
  Sex: Female

DRUGS (1)
  1. TERIPARATIDE [Suspect]
     Active Substance: TERIPARATIDE
     Indication: Osteoporosis
     Dosage: UNK UNK, UNKNOWN
     Route: 065
     Dates: start: 202201

REACTIONS (7)
  - Cholelithiasis [Unknown]
  - Calculus urinary [Unknown]
  - Dizziness [Unknown]
  - Haemorrhoids [Unknown]
  - Pain in extremity [Unknown]
  - Back pain [Unknown]
  - Nausea [Unknown]
